FAERS Safety Report 13024703 (Version 1)
Quarter: 2016Q4

REPORT INFORMATION
  Report Type: Spontaneous
  Country: US (occurrence: US)
  Receive Date: 20161213
  Receipt Date: 20161213
  Transmission Date: 20170207
  Serious: Yes (Other)
  Sender: FDA-Public Use
  Company Number: US-ROCHE-1777695

PATIENT
  Age: 96 Year
  Sex: Female

DRUGS (1)
  1. ACTIVASE [Suspect]
     Active Substance: ALTEPLASE
     Indication: CEREBROVASCULAR ACCIDENT
     Dosage: 100 MG VIAL USED AND ADJUSTED BASED ON WEIGHT
     Route: 065

REACTIONS (1)
  - Haemorrhage intracranial [Unknown]
